APPROVED DRUG PRODUCT: ANADROL-50
Active Ingredient: OXYMETHOLONE
Strength: 50MG
Dosage Form/Route: TABLET;ORAL
Application: N016848 | Product #001
Applicant: PHARMOBEDIENT CONSULTING LLC
Approved: Approved Prior to Jan 1, 1982 | RLD: Yes | RS: No | Type: DISCN